FAERS Safety Report 5693505-7 (Version None)
Quarter: 2008Q2

REPORT INFORMATION
  Report Type: 
  Country: None (occurrence: None)
  Receive Date: 20080403
  Receipt Date: 20080331
  Transmission Date: 20081010
  Serious: Yes (Death, Other)
  Sender: FDA-Public Use
  Company Number: B0359806A

PATIENT
  Age: 37 Year
  Sex: Male

DRUGS (5)
  1. SEROXAT [Suspect]
     Indication: ANXIETY
     Dosage: 20MG PER DAY
     Route: 065
     Dates: start: 20001020
  2. CITALOPRAM [Concomitant]
     Route: 065
  3. DIAZEPAM [Concomitant]
  4. OLANZAPINE [Concomitant]
     Dates: start: 20050317
  5. DIAZEPAM [Concomitant]
     Dates: start: 19961015

REACTIONS (17)
  - AGGRESSION [None]
  - ANGER [None]
  - CONVULSION [None]
  - DEATH [None]
  - DEREALISATION [None]
  - DISSOCIATION [None]
  - DIZZINESS [None]
  - DRUG WITHDRAWAL SYNDROME [None]
  - FATIGUE [None]
  - FLASHBACK [None]
  - GAIT DISTURBANCE [None]
  - INFLUENZA [None]
  - MALAISE [None]
  - NAUSEA [None]
  - PANIC ATTACK [None]
  - PHOTOSENSITIVITY REACTION [None]
  - SUICIDAL IDEATION [None]
